FAERS Safety Report 14453512 (Version 1)
Quarter: 2018Q1

REPORT INFORMATION
  Report Type: Spontaneous
  Country: JP (occurrence: JP)
  Receive Date: 20180129
  Receipt Date: 20180129
  Transmission Date: 20180509
  Serious: Yes (Other)
  Sender: FDA-Public Use
  Company Number: JP-PFIZER INC-2017533329

PATIENT
  Age: 73 Year
  Sex: Male

DRUGS (11)
  1. NEXIUM [Concomitant]
     Active Substance: ESOMEPRAZOLE MAGNESIUM
     Indication: PANCREATITIS
     Dosage: 20 MG, 1X/DAY
     Route: 048
  2. CAMOSTAT MESILATE [Concomitant]
     Active Substance: CAMOSTAT MESYLATE
     Indication: PANCREATITIS
     Dosage: 100 MG, 1X/DAY
     Route: 048
  3. AVOLVE [Concomitant]
     Active Substance: DUTASTERIDE
     Indication: BENIGN PROSTATIC HYPERPLASIA
     Dosage: 0.5 MG, 1X/DAY
     Route: 048
  4. EXCELASE [Concomitant]
     Active Substance: PANCRELIPASE
     Indication: PANCREATITIS
     Dosage: UNK UNK, 3X/DAY
     Route: 048
  5. TRESIBA [Concomitant]
     Active Substance: INSULIN DEGLUDEC
     Indication: TYPE 2 DIABETES MELLITUS
     Dosage: 4-6 UNITS THRICE DAILY
     Route: 058
  6. NOVORAPID [Concomitant]
     Active Substance: INSULIN ASPART
     Indication: TYPE 2 DIABETES MELLITUS
     Dosage: 6 DF, 3X/DAY
     Route: 058
  7. BIO-THREE [Concomitant]
     Active Substance: HERBALS
     Indication: PANCREATITIS
     Dosage: UNK UNK, 3X/DAY
     Route: 048
  8. REBAMIPIDE [Concomitant]
     Active Substance: REBAMIPIDE
     Indication: PANCREATITIS
     Dosage: 100 MG, 3X/DAY
     Route: 048
  9. ZITHROMAC 250MG [Suspect]
     Active Substance: AZITHROMYCIN DIHYDRATE
     Indication: DENTAL CARE
     Dosage: 500 MG, 1X/DAY
     Route: 048
     Dates: start: 20171201, end: 20171203
  10. POSTERISAN FORTE /01567801/ [Concomitant]
     Dosage: UNK
  11. XELODA [Concomitant]
     Active Substance: CAPECITABINE
     Indication: COLON CANCER
     Dosage: 1500 MG, 2X/DAY
     Route: 048

REACTIONS (1)
  - Blood glucose increased [Recovered/Resolved]

NARRATIVE: CASE EVENT DATE: 20171201
